FAERS Safety Report 21998639 (Version 2)
Quarter: 2023Q1

REPORT INFORMATION
  Report Type: Spontaneous
  Country: GB (occurrence: GB)
  Receive Date: 20230216
  Receipt Date: 20230308
  Transmission Date: 20230418
  Serious: Yes (Hospitalization)
  Sender: FDA-Public Use
  Company Number: GB-Galen Limited-AE-2023-0076

PATIENT
  Sex: Male
  Weight: 83 kg

DRUGS (36)
  1. AZACITIDINE [Suspect]
     Active Substance: AZACITIDINE
     Indication: Acute myeloid leukaemia
     Dosage: REGIMEN#13
     Route: 058
     Dates: start: 20221227, end: 20221227
  2. AZACITIDINE [Suspect]
     Active Substance: AZACITIDINE
     Route: 058
     Dates: start: 20221115, end: 20221115
  3. AZACITIDINE [Suspect]
     Active Substance: AZACITIDINE
     Dosage: REGIMEN#11
     Route: 058
     Dates: start: 20221223, end: 20221223
  4. AZACITIDINE [Suspect]
     Active Substance: AZACITIDINE
     Dosage: REGIMEN#6
     Route: 058
     Dates: start: 20221122, end: 20221122
  5. AZACITIDINE [Suspect]
     Active Substance: AZACITIDINE
     Dosage: REGIMEN#9
     Route: 058
     Dates: start: 20221221, end: 20221221
  6. AZACITIDINE [Suspect]
     Active Substance: AZACITIDINE
     Dosage: REGIMEN#12
     Route: 058
     Dates: start: 20221224, end: 20221224
  7. AZACITIDINE [Suspect]
     Active Substance: AZACITIDINE
     Dosage: REGIMEN#5
     Route: 058
     Dates: start: 20221119, end: 20221119
  8. AZACITIDINE [Suspect]
     Active Substance: AZACITIDINE
     Dosage: REGIMEN#10
     Route: 058
     Dates: start: 20221222, end: 20221222
  9. AZACITIDINE [Suspect]
     Active Substance: AZACITIDINE
     Dosage: REGIMEN#4
     Route: 058
     Dates: start: 20221118, end: 20221118
  10. AZACITIDINE [Suspect]
     Active Substance: AZACITIDINE
     Dosage: REGIMEN#8
     Route: 058
     Dates: start: 20221220, end: 20221220
  11. AZACITIDINE [Suspect]
     Active Substance: AZACITIDINE
     Dosage: REGIMEN#3
     Route: 058
     Dates: start: 20221117, end: 20221117
  12. AZACITIDINE [Suspect]
     Active Substance: AZACITIDINE
     Dosage: REGIMEN#14
     Route: 058
     Dates: start: 20221228, end: 20221228
  13. AZACITIDINE [Suspect]
     Active Substance: AZACITIDINE
     Dosage: REGIMEN#2
     Route: 058
     Dates: start: 20221116, end: 20221116
  14. AZACITIDINE [Suspect]
     Active Substance: AZACITIDINE
     Dosage: REGIMEN#7
     Route: 058
     Dates: start: 20221123, end: 20221123
  15. POLYETHYLENE GLYCOL 3350\POTASSIUM CHLORIDE\SODIUM BICARBONATE\SODIUM [Suspect]
     Active Substance: POLYETHYLENE GLYCOL 3350\POTASSIUM CHLORIDE\SODIUM BICARBONATE\SODIUM CHLORIDE
     Indication: Constipation
     Dosage: 1-2 SACHETS AS REQUIRED - REGIMEN#1
     Route: 048
     Dates: start: 20221118, end: 20230106
  16. POLYETHYLENE GLYCOL 3350\POTASSIUM CHLORIDE\SODIUM BICARBONATE\SODIUM [Suspect]
     Active Substance: POLYETHYLENE GLYCOL 3350\POTASSIUM CHLORIDE\SODIUM BICARBONATE\SODIUM CHLORIDE
     Dosage: INCREASED TO TWO SACHETS TDS
     Route: 048
     Dates: start: 20230108
  17. POLYETHYLENE GLYCOL 3350\POTASSIUM CHLORIDE\SODIUM BICARBONATE\SODIUM [Suspect]
     Active Substance: POLYETHYLENE GLYCOL 3350\POTASSIUM CHLORIDE\SODIUM BICARBONATE\SODIUM CHLORIDE
     Dosage: STARTED ON REGULAR LAXIDO
     Route: 048
     Dates: start: 20230107, end: 20230107
  18. SENNA [Suspect]
     Active Substance: SENNA LEAF\SENNOSIDES\SENNOSIDES A AND B
     Indication: Constipation
     Dosage: DOUBLED TO 15MG TWICE DAILY
     Dates: start: 20230107
  19. SENNA [Suspect]
     Active Substance: SENNA LEAF\SENNOSIDES\SENNOSIDES A AND B
     Dosage: REGIMEN#1
     Dates: start: 20230105
  20. VENETOCLAX [Suspect]
     Active Substance: VENETOCLAX
     Indication: Acute myeloid leukaemia
     Dosage: 50MG QD - REGIMEN#6
     Route: 048
     Dates: start: 20221120, end: 20221122
  21. VENETOCLAX [Suspect]
     Active Substance: VENETOCLAX
     Dosage: 20MG QD - REGIMEN#5
     Route: 048
     Dates: start: 20221119, end: 20221119
  22. VENETOCLAX [Suspect]
     Active Substance: VENETOCLAX
     Dosage: UNK QD - REGIMEN#3
     Route: 048
     Dates: start: 20221117, end: 20221117
  23. VENETOCLAX [Suspect]
     Active Substance: VENETOCLAX
     Dosage: 70MG QD - REGIMEN#9
     Route: 048
     Dates: start: 20221220, end: 20221220
  24. VENETOCLAX [Suspect]
     Active Substance: VENETOCLAX
     Dosage: 20MG QD - REGIMEN#2
     Route: 048
     Dates: start: 20221116, end: 20221116
  25. VENETOCLAX [Suspect]
     Active Substance: VENETOCLAX
     Dosage: 10MG QD
     Route: 048
     Dates: start: 20221115, end: 20221115
  26. VENETOCLAX [Suspect]
     Active Substance: VENETOCLAX
     Dosage: UNK QD - REGIMEN#8
     Route: 048
     Dates: start: 20221214, end: 20221219
  27. VENETOCLAX [Suspect]
     Active Substance: VENETOCLAX
     Dosage: 70MG QD - REGIMEN#7
     Route: 048
     Dates: start: 20221123, end: 20221213
  28. VENETOCLAX [Suspect]
     Active Substance: VENETOCLAX
     Dosage: 10MG QD - REGIMEN#4
     Route: 048
     Dates: start: 20221118, end: 20221118
  29. CIPROFLOXACIN [Concomitant]
     Active Substance: CIPROFLOXACIN
     Indication: Product used for unknown indication
     Dates: start: 20221123
  30. OMEPRAZOLE [Concomitant]
     Active Substance: OMEPRAZOLE
     Indication: Product used for unknown indication
     Dates: start: 20221115
  31. POSACONAZOLE [Concomitant]
     Active Substance: POSACONAZOLE
     Indication: Product used for unknown indication
     Dates: start: 20221116
  32. ALLOPURINOL [Concomitant]
     Active Substance: ALLOPURINOL
     Indication: Product used for unknown indication
     Dates: start: 20221115
  33. CHLORHEXIDINE HYDROCHLORIDE\NEOMYCIN SULFATE [Concomitant]
     Active Substance: CHLORHEXIDINE HYDROCHLORIDE\NEOMYCIN SULFATE
     Indication: Product used for unknown indication
     Dates: start: 20221123
  34. SODIUM CHLORIDE [Concomitant]
     Active Substance: SODIUM CHLORIDE
     Indication: Product used for unknown indication
     Dates: start: 20221115
  35. ACETAMINOPHEN [Concomitant]
     Active Substance: ACETAMINOPHEN
     Indication: Product used for unknown indication
     Dates: start: 20221117
  36. PIPERACILLIN SODIUM\TAZOBACTAM SODIUM [Concomitant]
     Active Substance: PIPERACILLIN SODIUM\TAZOBACTAM SODIUM
     Indication: Product used for unknown indication
     Dosage: 4.5G QDS IV
     Route: 042
     Dates: start: 20221115

REACTIONS (2)
  - Constipation [Recovered/Resolved]
  - Product use issue [Unknown]

NARRATIVE: CASE EVENT DATE: 20230106
